FAERS Safety Report 8193344-1 (Version None)
Quarter: 2012Q1

REPORT INFORMATION
  Report Type: 
  Country: None (occurrence: None)
  Receive Date: 20120308
  Receipt Date: 20120302
  Transmission Date: 20120608
  Serious: No
  Sender: FDA-Public Use
  Company Number: US-PFIZER INC-2012058289

PATIENT
  Sex: Female

DRUGS (1)
  1. CLEOCIN HYDROCHLORIDE [Suspect]
     Dosage: UNK
     Route: 067

REACTIONS (5)
  - ERYTHEMA [None]
  - PIGMENTATION DISORDER [None]
  - FEELING HOT [None]
  - SWELLING FACE [None]
  - URTICARIA [None]
